FAERS Safety Report 13138611 (Version 1)
Quarter: 2017Q1

REPORT INFORMATION
  Report Type: Spontaneous
  Country: US (occurrence: US)
  Receive Date: 20170123
  Receipt Date: 20170123
  Transmission Date: 20170428
  Serious: No
  Sender: FDA-Public Use
  Company Number: US-UNITED THERAPEUTICS-UNT-2016-012140

PATIENT
  Age: 37 Year
  Sex: Female
  Weight: 95.69 kg

DRUGS (6)
  1. REMODULIN [Suspect]
     Active Substance: TREPROSTINIL
     Dosage: 0.059 ?G/KG, UNK
     Route: 041
  2. TRACLEER [Concomitant]
     Active Substance: BOSENTAN
     Indication: PRODUCT USED FOR UNKNOWN INDICATION
  3. REVATIO [Concomitant]
     Active Substance: SILDENAFIL CITRATE
     Indication: PRODUCT USED FOR UNKNOWN INDICATION
  4. REMODULIN [Suspect]
     Active Substance: TREPROSTINIL
     Indication: PULMONARY HYPERTENSION
     Dosage: 0.056 ?G/KG, CONTINUING
     Route: 041
     Dates: start: 20150504
  5. COUMADIN [Concomitant]
     Active Substance: WARFARIN SODIUM
     Indication: PRODUCT USED FOR UNKNOWN INDICATION
  6. ADCIRCA [Concomitant]
     Active Substance: TADALAFIL
     Indication: PRODUCT USED FOR UNKNOWN INDICATION

REACTIONS (20)
  - Pain [Unknown]
  - Drug dose omission [Unknown]
  - Fatigue [Unknown]
  - Device occlusion [Unknown]
  - Headache [Recovering/Resolving]
  - Decreased appetite [Unknown]
  - Hypotension [Unknown]
  - Muscular weakness [Unknown]
  - Vision blurred [Recovering/Resolving]
  - Overdose [Recovered/Resolved]
  - Asthenia [Not Recovered/Not Resolved]
  - Feeling hot [Unknown]
  - Dizziness [Unknown]
  - Nausea [Unknown]
  - Hyperhidrosis [Unknown]
  - Cold sweat [Unknown]
  - Pain in jaw [Recovering/Resolving]
  - Device kink [Unknown]
  - Palpitations [Recovering/Resolving]
  - Syncope [Unknown]

NARRATIVE: CASE EVENT DATE: 201607
